FAERS Safety Report 8812227 (Version 2)
Quarter: 2014Q3

REPORT INFORMATION
  Report Type: Report from Study
  Country: US (occurrence: US)
  Receive Date: 20120927
  Receipt Date: 20140905
  Transmission Date: 20150326
  Serious: Yes (Other)
  Sender: FDA-Public Use
  Company Number: US-ROCHE-1125728

PATIENT
  Sex: Female
  Weight: 69 kg

DRUGS (5)
  1. GEMCITABINE [Concomitant]
     Active Substance: GEMCITABINE\GEMCITABINE HYDROCHLORIDE
  2. AVASTIN [Suspect]
     Active Substance: BEVACIZUMAB
     Indication: BREAST CANCER FEMALE
     Route: 065
     Dates: start: 20080916
  3. CARBOPLATIN. [Concomitant]
     Active Substance: CARBOPLATIN
  4. XELODA [Suspect]
     Active Substance: CAPECITABINE
     Indication: BREAST CANCER FEMALE
     Route: 065
  5. ABRAXANE [Concomitant]
     Active Substance: PACLITAXEL

REACTIONS (4)
  - Lung neoplasm malignant [Unknown]
  - Metastases to bone [Unknown]
  - Hepatic cancer [Unknown]
  - Bone lesion [Unknown]
